FAERS Safety Report 19645779 (Version 1)
Quarter: 2021Q3

REPORT INFORMATION
  Report Type: Spontaneous
  Country: US (occurrence: US)
  Receive Date: 20210730
  Receipt Date: 20210730
  Transmission Date: 20211014
  Serious: Yes (Hospitalization, Disabling)
  Sender: FDA-Public Use
  Company Number: None

PATIENT
  Age: 62 Year
  Sex: Female

DRUGS (11)
  1. SULFA/TRIMETH [Concomitant]
  2. METOCLOPRAMIDE. [Concomitant]
     Active Substance: METOCLOPRAMIDE
  3. CAPECITABINE 500MG [Suspect]
     Active Substance: CAPECITABINE
     Indication: PANCREATIC CARCINOMA
     Route: 048
     Dates: start: 20210612
  4. MORPHINE [Concomitant]
     Active Substance: MORPHINE
  5. ONDANSETRON [Concomitant]
     Active Substance: ONDANSETRON
  6. DOROZOLOMIDE [Concomitant]
  7. OXYCODONE [Concomitant]
     Active Substance: OXYCODONE
  8. PREDNISONE. [Concomitant]
     Active Substance: PREDNISONE
  9. ASPIRIN. [Concomitant]
     Active Substance: ASPIRIN
  10. TACROLIMUS. [Concomitant]
     Active Substance: TACROLIMUS
  11. MAG?OXIDE [Concomitant]
     Active Substance: MAGNESIUM OXIDE

REACTIONS (3)
  - Drug ineffective [None]
  - Pain [None]
  - Metastatic neoplasm [None]

NARRATIVE: CASE EVENT DATE: 20210726
